FAERS Safety Report 5866149-1 (Version None)
Quarter: 2008Q3

REPORT INFORMATION
  Report Type: 
  Country: None (occurrence: None)
  Receive Date: 20080829
  Receipt Date: 20080822
  Transmission Date: 20090109
  Serious: Yes (Hospitalization)
  Sender: FDA-Public Use
  Company Number: US-MERCK-0705USA02849

PATIENT
  Age: 69 Year
  Sex: Female

DRUGS (2)
  1. FOSAMAX [Suspect]
     Indication: OSTEOPENIA
     Route: 048
     Dates: start: 19980325
  2. FOSAMAX [Suspect]
     Route: 048
     Dates: end: 20060701

REACTIONS (14)
  - HEADACHE [None]
  - LIMB DISCOMFORT [None]
  - MUSCULOSKELETAL DISCOMFORT [None]
  - OEDEMA MOUTH [None]
  - ORAL PAIN [None]
  - PAIN IN JAW [None]
  - PELVIC PROLAPSE [None]
  - RASH [None]
  - REACTION TO FOOD ADDITIVE [None]
  - ROAD TRAFFIC ACCIDENT [None]
  - STRESS URINARY INCONTINENCE [None]
  - TOOTH DISORDER [None]
  - TOOTH LOSS [None]
  - TRIGEMINAL NEURALGIA [None]
